FAERS Safety Report 25927367 (Version 1)
Quarter: 2025Q4

REPORT INFORMATION
  Report Type: Spontaneous
  Country: US (occurrence: US)
  Receive Date: 20251015
  Receipt Date: 20251015
  Transmission Date: 20260117
  Serious: No
  Sender: BLUEPRINT MEDICINES
  Company Number: US-Blueprint Medicines Corporation-2025-AER-02252

PATIENT
  Age: 16 Year
  Sex: Female

DRUGS (2)
  1. AYVAKIT [Suspect]
     Active Substance: AVAPRITINIB
     Indication: Nervous system neoplasm
     Route: 065
     Dates: start: 20250707
  2. AYVAKIT [Suspect]
     Active Substance: AVAPRITINIB
     Indication: Endocrine neoplasm

REACTIONS (1)
  - Blood creatinine increased [Recovering/Resolving]
